FAERS Safety Report 23830627 (Version 3)
Quarter: 2024Q2

REPORT INFORMATION
  Report Type: Spontaneous
  Country: US (occurrence: US)
  Receive Date: 20240508
  Receipt Date: 20240527
  Transmission Date: 20240715
  Serious: Yes (Other)
  Sender: FDA-Public Use
  Company Number: US-BRISTOL-MYERS SQUIBB COMPANY-2024-068420

PATIENT
  Age: 79 Year
  Sex: Male

DRUGS (1)
  1. LENALIDOMIDE [Suspect]
     Active Substance: LENALIDOMIDE
     Indication: Plasma cell myeloma
     Dosage: TAKE 1 CAPSULE BY MOUTH ONCE DAILY ON DAYS 1-21 EVERY 28 DAYS
     Route: 048

REACTIONS (4)
  - White blood cell count decreased [Recovered/Resolved]
  - Platelet count decreased [Recovering/Resolving]
  - Hypoacusis [Not Recovered/Not Resolved]
  - Excessive cerumen production [Not Recovered/Not Resolved]
